FAERS Safety Report 9914144 (Version 1)
Quarter: 2014Q1

REPORT INFORMATION
  Report Type: Spontaneous
  Country: DE (occurrence: DE)
  Receive Date: 20140220
  Receipt Date: 20140220
  Transmission Date: 20141002
  Serious: Yes (Hospitalization)
  Sender: FDA-Public Use
  Company Number: DE-PFIZER INC-2014046053

PATIENT
  Age: 60 Year
  Sex: Female
  Weight: 100 kg

DRUGS (5)
  1. PREGABALIN [Suspect]
     Indication: BREAST CANCER METASTATIC
     Dosage: 300 MG, 3X/DAY
     Route: 048
     Dates: start: 20131118, end: 20131230
  2. OMEPRAZOL [Concomitant]
     Indication: BREAST CANCER METASTATIC
     Dosage: 20 MG, 1X/DAY
     Route: 048
     Dates: start: 20131210
  3. OXYCODONE [Concomitant]
     Indication: BREAST CANCER METASTATIC
     Dosage: 120 MG, 1X/DAY
     Dates: start: 20131118
  4. IBUPROFEN [Concomitant]
     Dosage: 600 MG, 3X/DAY
     Dates: start: 20131210
  5. RAMIPRIL [Concomitant]
     Indication: BREAST CANCER METASTATIC
     Dosage: 5 MG, 2X/DAY
     Dates: start: 20140103

REACTIONS (8)
  - Off label use [Not Recovered/Not Resolved]
  - Withdrawal syndrome [Not Recovered/Not Resolved]
  - Nausea [Not Recovered/Not Resolved]
  - Crying [Not Recovered/Not Resolved]
  - Depression [Not Recovered/Not Resolved]
  - Feeling of despair [Not Recovered/Not Resolved]
  - Tachycardia [Not Recovered/Not Resolved]
  - Hypertension [Not Recovered/Not Resolved]
